FAERS Safety Report 25761946 (Version 1)
Quarter: 2025Q3

REPORT INFORMATION
  Report Type: Spontaneous
  Country: US (occurrence: None)
  Receive Date: 20250904
  Receipt Date: 20250904
  Transmission Date: 20251021
  Serious: Yes (Death)
  Sender: FDA-CTU
  Company Number: None

PATIENT
  Age: 94 Year
  Sex: Female

DRUGS (13)
  1. PROLIA [Suspect]
     Active Substance: DENOSUMAB
     Indication: Osteoporosis
     Route: 058
  2. LOSARTAN [Concomitant]
     Active Substance: LOSARTAN
  3. CRESTOR [Concomitant]
     Active Substance: ROSUVASTATIN CALCIUM
  4. LIDODERM [Concomitant]
     Active Substance: LIDOCAINE
  5. MYRBETRIQ [Concomitant]
     Active Substance: MIRABEGRON
  6. NORVASC [Concomitant]
     Active Substance: AMLODIPINE BESYLATE
  7. PLAVIX [Concomitant]
     Active Substance: CLOPIDOGREL BISULFATE
  8. PROTONIX [Concomitant]
     Active Substance: PANTOPRAZOLE SODIUM
  9. RESTASIS [Concomitant]
     Active Substance: CYCLOSPORINE
  10. TRELEGY ELLIPTA [Concomitant]
     Active Substance: FLUTICASONE FUROATE\UMECLIDINIUM BROMIDE\VILANTEROL TRIFENATATE
  11. TYLENOL [Concomitant]
     Active Substance: ACETAMINOPHEN
  12. VASCEPA [Concomitant]
     Active Substance: ICOSAPENT ETHYL
  13. VITAMIN D3 [Concomitant]
     Active Substance: CHOLECALCIFEROL

REACTIONS (1)
  - Death [None]

NARRATIVE: CASE EVENT DATE: 20250903
